FAERS Safety Report 10170520 (Version 2)
Quarter: 2014Q2

REPORT INFORMATION
  Report Type: Report from Study
  Country: AR (occurrence: AR)
  Receive Date: 20140513
  Receipt Date: 20140603
  Transmission Date: 20141212
  Serious: Yes (Other)
  Sender: FDA-Public Use
  Company Number: PHHY2014AR057818

PATIENT
  Sex: Female

DRUGS (1)
  1. DIOVAN [Suspect]
     Indication: HYPERTENSION
     Dosage: 1 TABLET (80 MG) DAILY
     Route: 048
     Dates: start: 2011

REACTIONS (6)
  - Blindness unilateral [Unknown]
  - Procedural complication [Unknown]
  - Iatrogenic injury [Unknown]
  - Intraocular pressure increased [Unknown]
  - Dizziness [Unknown]
  - Hypertension [Unknown]
